FAERS Safety Report 8062172-X (Version None)
Quarter: 2012Q1

REPORT INFORMATION
  Report Type: 
  Country: None (occurrence: None)
  Receive Date: 20120118
  Receipt Date: 20120104
  Transmission Date: 20120608
  Serious: Yes (Other)
  Sender: FDA-Public Use
  Company Number: JPI-P-019114

PATIENT
  Age: 21 Year
  Sex: Female

DRUGS (10)
  1. LEVONORGESTREL AND ETHINYL ESTRADIOL [Concomitant]
  2. LEVETIRACETAM [Concomitant]
  3. DULOXETINE HYDROCHLORIDE [Concomitant]
  4. ACETYLSALICYLIC ACID SRT [Concomitant]
  5. LUBIPROSTONE [Concomitant]
  6. XYREM [Suspect]
     Indication: NARCOLEPSY
     Dosage: 6 GM (3 GM, 2 IN 1 D), ORAL; (TITRATING DOSE), ORAL; 9 GM (4.5 GM, 2 IN 1 D), ORAL
     Route: 048
     Dates: start: 20091022
  7. XYREM [Suspect]
     Indication: NARCOLEPSY
     Dosage: 6 GM (3 GM, 2 IN 1 D), ORAL; (TITRATING DOSE), ORAL; 9 GM (4.5 GM, 2 IN 1 D), ORAL
     Route: 048
     Dates: start: 20111109
  8. BISACODYL [Concomitant]
  9. PROPRANOLOL [Concomitant]
  10. MINOCYCLINE HCL [Concomitant]

REACTIONS (13)
  - DIZZINESS [None]
  - NAUSEA [None]
  - FATIGUE [None]
  - HEADACHE [None]
  - POOR QUALITY SLEEP [None]
  - PHARYNGITIS STREPTOCOCCAL [None]
  - RECTOCELE [None]
  - RECTAL FISSURE [None]
  - BACK PAIN [None]
  - INFLAMMATION [None]
  - INSOMNIA [None]
  - HANGOVER [None]
  - SPINAL CORD DISORDER [None]
